FAERS Safety Report 9373770 (Version 2)
Quarter: 2013Q3

REPORT INFORMATION
  Report Type: Spontaneous
  Country: CN (occurrence: CN)
  Receive Date: 20130628
  Receipt Date: 20130705
  Transmission Date: 20140515
  Serious: Yes (Hospitalization)
  Sender: FDA-Public Use
  Company Number: CN-009507513-1306CHN011810

PATIENT
  Age: 84 Year
  Sex: Male
  Weight: 54 kg

DRUGS (1)
  1. ZOCOR [Suspect]
     Indication: HYPERLIPIDAEMIA
     Dosage: 20 MG, QD
     Route: 048
     Dates: start: 20100710

REACTIONS (2)
  - Physical examination [Unknown]
  - Aspartate aminotransferase increased [Recovering/Resolving]
